FAERS Safety Report 10982878 (Version 1)
Quarter: 2015Q2

REPORT INFORMATION
  Report Type: Spontaneous
  Country: US (occurrence: None)
  Receive Date: 20150402
  Receipt Date: 20150402
  Transmission Date: 20150821
  Serious: No
  Sender: FDA-Public Use
  Company Number: None

PATIENT
  Sex: Female

DRUGS (13)
  1. CYCLOBENZAPRINE [Concomitant]
     Active Substance: CYCLOBENZAPRINE
  2. AMOXICILLIN. [Concomitant]
     Active Substance: AMOXICILLIN
  3. FISH OIL [Concomitant]
     Active Substance: FISH OIL
  4. AFINITOR [Suspect]
     Active Substance: EVEROLIMUS
     Indication: NEOPLASM MALIGNANT
     Route: 048
     Dates: start: 20130606
  5. ELLIABIX QUAD [Concomitant]
  6. AROMASIN [Concomitant]
     Active Substance: EXEMESTANE
  7. ZITHROMAX [Concomitant]
     Active Substance: AZITHROMYCIN DIHYDRATE
  8. EXEMESTANE. [Concomitant]
     Active Substance: EXEMESTANE
  9. JAKAFI [Concomitant]
     Active Substance: RUXOLITINIB
  10. VALIUM [Concomitant]
     Active Substance: DIAZEPAM
  11. KETOCONAZOLE. [Concomitant]
     Active Substance: KETOCONAZOLE
  12. XARELTO [Concomitant]
     Active Substance: RIVAROXABAN
  13. OXYCODONE/ACETAMINOPHEN [Concomitant]
     Active Substance: ACETAMINOPHEN\OXYCODONE HYDROCHLORIDE

REACTIONS (1)
  - Malignant neoplasm progression [None]
